FAERS Safety Report 20449462 (Version 1)
Quarter: 2022Q1

REPORT INFORMATION
  Report Type: Spontaneous
  Country: US (occurrence: None)
  Receive Date: 20220208
  Receipt Date: 20220208
  Transmission Date: 20220424
  Serious: Yes (Death)
  Sender: FDA-Public Use
  Company Number: None

PATIENT
  Age: 5 Month
  Sex: Male
  Weight: 8 kg

DRUGS (9)
  1. SIROLIMUS [Suspect]
     Active Substance: SIROLIMUS
     Indication: Lymphatic system neoplasm
     Dosage: FREQUENCY : DAILY;?OTHER ROUTE : NASOGASTRIC;?
     Route: 050
     Dates: start: 20210820, end: 20220105
  2. CEFTAZIDIME [Concomitant]
     Active Substance: CEFTAZIDIME
     Dates: start: 20220105
  3. d10%W 0.45% NS with 20 mEq/L KCl and heparin 1 unit/mL [Concomitant]
     Dates: start: 20211231, end: 20220105
  4. Dopamine 1600 mcg/mL [Concomitant]
     Dates: start: 20220105, end: 20220105
  5. Ferrous sulfate (15 mg/mL elemental iron) [Concomitant]
     Dates: start: 20211122, end: 20220105
  6. MELATONIN [Concomitant]
     Active Substance: MELATONIN
     Dates: start: 20211004, end: 20220105
  7. morphine 1 mg/mL in D5W [Concomitant]
     Dates: start: 20211215, end: 20220105
  8. RISPERIDONE [Concomitant]
     Active Substance: RISPERIDONE
     Dates: start: 20211004, end: 20220105
  9. sodium chloride 4 mEq/L oral solution [Concomitant]
     Dates: start: 20211222, end: 20220105

REACTIONS (10)
  - Metabolic acidosis [None]
  - Bradycardia [None]
  - Cardiac arrest [None]
  - Hypotension [None]
  - Cardiac dysfunction [None]
  - Tracheal injury [None]
  - Pulmonary haemorrhage [None]
  - Hypoglycaemia [None]
  - Oxygen saturation decreased [None]
  - Neoplasm progression [None]

NARRATIVE: CASE EVENT DATE: 20220105
